FAERS Safety Report 10178561 (Version 1)
Quarter: 2014Q2

REPORT INFORMATION
  Report Type: Spontaneous
  Country: US (occurrence: None)
  Receive Date: 20140516
  Receipt Date: 20140516
  Transmission Date: 20141212
  Serious: Yes (Life-Threatening)
  Sender: FDA-Public Use
  Company Number: None

PATIENT
  Age: 43 Year
  Sex: Female
  Weight: 72.58 kg

DRUGS (1)
  1. YASMIN 3MG/0.03MG BAYER [Suspect]
     Indication: ENDOMETRIOSIS
     Dosage: TAKEN BY MOUTH

REACTIONS (1)
  - Thrombosis [None]
